FAERS Safety Report 7370000-0 (Version None)
Quarter: 2011Q1

REPORT INFORMATION
  Report Type: 
  Country: None (occurrence: None)
  Receive Date: 20110323
  Receipt Date: 20110309
  Transmission Date: 20110831
  Serious: Yes (Hospitalization, Other)
  Sender: FDA-Public Use
  Company Number: PHHY2011FR19942

PATIENT
  Sex: Female

DRUGS (3)
  1. ALPRAZOLAM [Concomitant]
     Dosage: UNK
  2. SEROPLEX [Suspect]
     Dosage: 10 MG, QD
     Dates: end: 20100901
  3. COTAREG [Suspect]
     Dosage: 160MG VALSARTAN AND 25MG HYDROCHLOROTHIAZIDE QD
     Dates: end: 20100901

REACTIONS (6)
  - DISORIENTATION [None]
  - PAIN [None]
  - HYPONATRAEMIA [None]
  - DEHYDRATION [None]
  - LOWER LIMB FRACTURE [None]
  - GENERAL PHYSICAL HEALTH DETERIORATION [None]
